FAERS Safety Report 9686232 (Version 3)
Quarter: 2013Q4

REPORT INFORMATION
  Report Type: Spontaneous
  Country: DE (occurrence: DE)
  Receive Date: 20131113
  Receipt Date: 20131122
  Transmission Date: 20140711
  Serious: Yes (Other)
  Sender: FDA-Public Use
  Company Number: DE-PFIZER INC-2013318934

PATIENT
  Age: 22 Year
  Sex: Female

DRUGS (9)
  1. RAMIPRIL [Suspect]
     Indication: GLOMERULONEPHRITIS
     Dosage: 2.5 MG, DAILY
     Route: 048
  2. FUROSEMIDE [Suspect]
     Indication: GLOMERULONEPHRITIS
     Dosage: UNK
     Route: 048
  3. PREDNISOLON [Suspect]
     Indication: IMMUNE THROMBOCYTOPENIC PURPURA
     Dosage: UNK
     Route: 048
  4. FLUVASTATIN [Suspect]
     Indication: HYPERCHOLESTEROLAEMIA
     Dosage: 20 MG, DAILY
     Route: 048
  5. PROGRAF [Suspect]
     Indication: NEPHROTIC SYNDROME
     Dosage: 1 MG, 2X/DAY
     Route: 048
  6. TORASEMIDE [Suspect]
     Indication: GLOMERULONEPHRITIS
     Dosage: UNK
     Route: 048
  7. OMEPRAZOLE [Concomitant]
     Indication: GASTRITIS PROPHYLAXIS
     Dosage: 40 MG, DAILY
  8. IDEOS [Concomitant]
     Indication: OSTEOPOROSIS PROPHYLAXIS
     Dosage: UNK
  9. FOLIC ACID [Concomitant]
     Indication: PROPHYLAXIS OF NEURAL TUBE DEFECT
     Dosage: 5 MG, DAILY

REACTIONS (1)
  - Premature rupture of membranes [Unknown]
